FAERS Safety Report 21041158 (Version 9)
Quarter: 2023Q1

REPORT INFORMATION
  Report Type: Other
  Country: DE (occurrence: DE)
  Receive Date: 20220705
  Receipt Date: 20230320
  Transmission Date: 20230418
  Serious: No
  Sender: FDA-Public Use
  Company Number: DE-ROCHE-2819268

PATIENT
  Age: 33 Year
  Sex: Male
  Weight: 68 kg

DRUGS (19)
  1. OCREVUS [Suspect]
     Active Substance: OCRELIZUMAB
     Indication: Relapsing-remitting multiple sclerosis
     Dosage: FREQ:164 D; SUBSEQUENT DOSE ON 15/MAR/2022
     Route: 042
     Dates: start: 20161213
  2. OCREVUS [Suspect]
     Active Substance: OCRELIZUMAB
     Indication: Secondary progressive multiple sclerosis
     Dosage: FREQ:214 LAST DOSE
     Route: 042
     Dates: start: 20210412
  3. OCREVUS [Suspect]
     Active Substance: OCRELIZUMAB
     Route: 042
     Dates: start: 2021
  4. COMIRNATY [Suspect]
     Active Substance: TOZINAMERAN
     Indication: COVID-19 prophylaxis
     Dosage: DOSE 3 (BOOSTER), 0.3 ML SINGLE
     Route: 065
     Dates: start: 20211217, end: 20211217
  5. COMIRNATY [Suspect]
     Active Substance: TOZINAMERAN
     Indication: COVID-19 immunisation
  6. TIZANIDINE [Concomitant]
     Active Substance: TIZANIDINE
     Dosage: 2 MG, 3X/DAY 1-1-1
  7. TIZANIDINE [Concomitant]
     Active Substance: TIZANIDINE
     Dosage: FREQ:.33 D;1-1-1
  8. OXCARBAZEPINE [Concomitant]
     Active Substance: OXCARBAZEPINE
     Dosage: 300 MG, 2X/DAY, 1-0-1
  9. DRONABINOL [Concomitant]
     Active Substance: DRONABINOL
     Dosage: FREQ:.33 D; 1-1-1
  10. DRONABINOL [Concomitant]
     Active Substance: DRONABINOL
     Dosage: 10 DROP, 3X/DAY 1-1-1
  11. ESOMEPRAZOLE [Concomitant]
     Active Substance: ESOMEPRAZOLE
     Dosage: 20 MG, 2X/DAY, 1-0-1
  12. PANTOPRAZOLE SODIUM [Concomitant]
     Active Substance: PANTOPRAZOLE SODIUM
  13. ESCITALOPRAM [Concomitant]
     Active Substance: ESCITALOPRAM OXALATE
     Dosage: 1-0-0
  14. METAMIZOLE [Concomitant]
     Active Substance: METAMIZOLE
     Dosage: 500 MG/ML 40 DROPS, 2X/DAY, 1-0-1 AS NEEDED
  15. METAMIZOLE [Concomitant]
     Active Substance: METAMIZOLE
     Dosage: 500 MG/ML 40 DROPS AS NEEDED
  16. CALCIUM CARBONATE\SODIUM ALGINATE\SODIUM BICARBONATE [Concomitant]
     Active Substance: CALCIUM CARBONATE\SODIUM ALGINATE\SODIUM BICARBONATE
     Dosage: 2X/DAY, 0-1-1, (0.5 PER DAY)
  17. CALCIUM CARBONATE\SODIUM ALGINATE\SODIUM BICARBONATE [Concomitant]
     Active Substance: CALCIUM CARBONATE\SODIUM ALGINATE\SODIUM BICARBONATE
     Dosage: UNK
  18. BACLOFEN [Concomitant]
     Active Substance: BACLOFEN
     Dosage: 25 MG 1-0.5-1
  19. BACLOFEN [Concomitant]
     Active Substance: BACLOFEN
     Dosage: 1-1-1

REACTIONS (17)
  - Fatigue [Not Recovered/Not Resolved]
  - Gait disturbance [Not Recovered/Not Resolved]
  - Muscle spasticity [Not Recovered/Not Resolved]
  - Paraesthesia [Recovered/Resolved]
  - Weight decreased [Recovering/Resolving]
  - Pain in extremity [Recovered/Resolved]
  - Headache [Recovered/Resolved]
  - Lower respiratory tract congestion [Recovered/Resolved]
  - Cough [Recovered/Resolved]
  - Gait disturbance [Recovered/Resolved]
  - Genital burning sensation [Not Recovered/Not Resolved]
  - Burning sensation [Not Recovered/Not Resolved]
  - COVID-19 [Recovered/Resolved]
  - Gastrointestinal disorder [Not Recovered/Not Resolved]
  - Off label use [Unknown]
  - Constipation [Unknown]
  - Diarrhoea [Unknown]

NARRATIVE: CASE EVENT DATE: 20161213
